FAERS Safety Report 18858929 (Version 1)
Quarter: 2021Q1

REPORT INFORMATION
  Report Type: Spontaneous
  Country: US (occurrence: US)
  Receive Date: 20210206
  Receipt Date: 20210206
  Transmission Date: 20210420
  Serious: Yes (Other)
  Sender: FDA-Public Use
  Company Number: None

PATIENT
  Age: 34 Year
  Sex: Female
  Weight: 63 kg

DRUGS (1)
  1. DICYCLOMINE HYDROCHLORIDE (GENERIC FOR: BENTYL) [Suspect]
     Active Substance: DICYCLOMINE HYDROCHLORIDE
     Indication: ABDOMINAL DISTENSION
     Dosage: ?          QUANTITY:2 TABLET(S);?
     Route: 048
     Dates: start: 20200505, end: 20200507

REACTIONS (3)
  - Hypoaesthesia [None]
  - Hypoaesthesia oral [None]
  - Swelling [None]

NARRATIVE: CASE EVENT DATE: 20200506
